FAERS Safety Report 21941275 (Version 1)
Quarter: 2023Q1

REPORT INFORMATION
  Report Type: Report from Study
  Country: US (occurrence: US)
  Receive Date: 20230202
  Receipt Date: 20230202
  Transmission Date: 20230418
  Serious: No
  Sender: FDA-Public Use
  Company Number: US-EXELIXIS-CABO-22053925

PATIENT
  Sex: Male

DRUGS (8)
  1. CABOMETYX [Suspect]
     Active Substance: CABOZANTINIB S-MALATE
     Indication: Renal cell carcinoma
     Dosage: 60 MG, QD
     Dates: start: 20220617, end: 20220729
  2. CABOMETYX [Suspect]
     Active Substance: CABOZANTINIB S-MALATE
     Dosage: 40 MG, QD
     Dates: start: 20220819
  3. ENBREL [Concomitant]
     Active Substance: ETANERCEPT
  4. METHOTREXATE [Concomitant]
     Active Substance: METHOTREXATE
  5. FOLIC ACID [Concomitant]
     Active Substance: FOLIC ACID
  6. LYSINE [Concomitant]
     Active Substance: LYSINE
  7. VITAMINS [Concomitant]
     Active Substance: VITAMINS
  8. CALCIUM\CHOLECALCIFEROL [Concomitant]
     Active Substance: CALCIUM\CHOLECALCIFEROL

REACTIONS (18)
  - Abdominal discomfort [Recovered/Resolved]
  - Glossitis [Not Recovered/Not Resolved]
  - Pustule [Recovering/Resolving]
  - Hyperkeratosis [Recovering/Resolving]
  - Ageusia [Recovering/Resolving]
  - Thyroid disorder [Unknown]
  - Oropharyngeal pain [Recovered/Resolved]
  - Skin ulcer [Recovering/Resolving]
  - Rash pruritic [Not Recovered/Not Resolved]
  - Platelet count decreased [Recovered/Resolved]
  - Stomatitis [Recovered/Resolved]
  - Fatigue [Recovering/Resolving]
  - Blood pressure increased [Recovered/Resolved]
  - Dermatitis acneiform [Recovering/Resolving]
  - Decreased appetite [Recovering/Resolving]
  - Dehydration [Recovering/Resolving]
  - Diarrhoea [Recovered/Resolved]
  - Rash [Recovered/Resolved]
